FAERS Safety Report 19644744 (Version 1)
Quarter: 2021Q3

REPORT INFORMATION
  Report Type: Spontaneous
  Country: JP (occurrence: JP)
  Receive Date: 20210802
  Receipt Date: 20210802
  Transmission Date: 20211014
  Serious: Yes (Hospitalization, Other)
  Sender: FDA-Public Use
  Company Number: JP-SUN PHARMACEUTICAL INDUSTRIES LTD-2021RR-306252

PATIENT
  Sex: Female

DRUGS (4)
  1. OCTREOTIDE. [Suspect]
     Active Substance: OCTREOTIDE
     Indication: CONGENITAL CHYLOTHORAX
     Dosage: 1 MICROGRAM/KILOGRAM, Q1H
     Route: 065
  2. PREDNISOLONE. [Suspect]
     Active Substance: PREDNISOLONE
     Indication: CONGENITAL CHYLOTHORAX
     Dosage: 2 MILLIGRAM/KILOGRAM/DAY
     Route: 065
  3. POVIDONE?IODINE. [Suspect]
     Active Substance: POVIDONE-IODINE
     Indication: CONGENITAL CHYLOTHORAX
     Dosage: 4 PERCENT, ON DOL 51 AND 55
     Route: 065
  4. OCTREOTIDE. [Suspect]
     Active Substance: OCTREOTIDE
     Dosage: GRADUALLY INCREASED TO 9.0 UG/KG/H
     Route: 065

REACTIONS (2)
  - Drug ineffective [Unknown]
  - Condition aggravated [Unknown]
